FAERS Safety Report 25158993 (Version 1)
Quarter: 2025Q2

REPORT INFORMATION
  Report Type: Spontaneous
  Country: SE (occurrence: SE)
  Receive Date: 20250404
  Receipt Date: 20250404
  Transmission Date: 20250717
  Serious: Yes (Congenital Anomaly, Other)
  Sender: BRISTOL MYERS SQUIBB
  Company Number: None

PATIENT

DRUGS (2)
  1. ELIQUIS [Suspect]
     Active Substance: APIXABAN
     Indication: Product used for unknown indication
     Dosage: 1X1
     Route: 064
     Dates: start: 20240814, end: 20241119
  2. FRAGMIN [Concomitant]
     Active Substance: DALTEPARIN SODIUM
     Indication: Product used for unknown indication
     Route: 064
     Dates: start: 202411

REACTIONS (2)
  - Foetal exposure during pregnancy [Unknown]
  - Double outlet right ventricle [Unknown]
